FAERS Safety Report 25956596 (Version 1)
Quarter: 2025Q4

REPORT INFORMATION
  Report Type: Spontaneous
  Country: GB (occurrence: GB)
  Receive Date: 20251024
  Receipt Date: 20251024
  Transmission Date: 20260117
  Serious: Yes (Other)
  Sender: AUROBINDO
  Company Number: GB-MHRA-EMIS-10703-62cec301-bdb3-47aa-903f-08d3d0a0fb7f

PATIENT
  Age: 42 Year
  Sex: Male

DRUGS (5)
  1. MIRTAZAPINE [Suspect]
     Active Substance: MIRTAZAPINE
     Indication: Product used for unknown indication
     Dosage: UNK UNK, AT BED TIME (ONE TO BE TAKEN AT NIGHT)
     Route: 065
     Dates: start: 20250529
  2. ZOPICLONE [Concomitant]
     Active Substance: ZOPICLONE
     Indication: Product used for unknown indication
     Dosage: UNK UNK, AT BED TIME (ONE TO BE TAKEN AT NIGHT)
     Route: 065
     Dates: start: 20250529
  3. MIRTAZAPINE [Concomitant]
     Active Substance: MIRTAZAPINE
     Indication: Product used for unknown indication
     Dosage: UNK UNK, AT BED TIME (ONE TO BE TAKEN AT NIGHT)
     Route: 065
     Dates: start: 20250529, end: 20250619
  4. LANSOPRAZOLE [Concomitant]
     Active Substance: LANSOPRAZOLE
     Indication: Product used for unknown indication
     Dosage: 1 DOSAGE FORM, EVERY MORNING (TAKE ONE CAPSULE IN THE MORNING)
     Route: 065
     Dates: start: 20250529
  5. PROMETHAZINE HYDROCHLORIDE [Concomitant]
     Active Substance: PROMETHAZINE HYDROCHLORIDE
     Indication: Product used for unknown indication
     Dosage: UNK UNK, ONCE A DAY (ONE OR TWO TO BE TAKEN ONCE A DAY)
     Route: 065
     Dates: start: 20250619

REACTIONS (2)
  - Suicidal ideation [Recovered/Resolved]
  - Nightmare [Recovered/Resolved]
